FAERS Safety Report 16462797 (Version 1)
Quarter: 2019Q2

REPORT INFORMATION
  Report Type: Report from Study
  Country: US (occurrence: US)
  Receive Date: 20190621
  Receipt Date: 20190621
  Transmission Date: 20190711
  Serious: Yes (Other)
  Sender: FDA-Public Use
  Company Number: US-MYLANLABS-2019M1055841

PATIENT
  Age: 41 Year
  Sex: Female
  Weight: 97.52 kg

DRUGS (3)
  1. GLATIRAMER ACETATE INJECTION [Suspect]
     Active Substance: GLATIRAMER ACETATE
     Indication: RELAPSING-REMITTING MULTIPLE SCLEROSIS
     Dosage: 40 MILLIGRAM, 3XW
     Route: 058
  2. MAGNESIUM [Concomitant]
     Active Substance: MAGNESIUM
  3. VITAMIN D NOS [Concomitant]
     Active Substance: VITAMIN D NOS

REACTIONS (14)
  - Bruxism [Unknown]
  - Tinnitus [Unknown]
  - Ear disorder [Unknown]
  - Ear discomfort [Unknown]
  - Pain [Unknown]
  - Pruritus generalised [Recovered/Resolved]
  - Sinusitis [Unknown]
  - Adverse event [Unknown]
  - Urticaria [Recovered/Resolved]
  - Headache [Unknown]
  - Drug ineffective [Unknown]
  - Facial pain [Unknown]
  - Vertigo [Unknown]
  - Pain in jaw [Unknown]

NARRATIVE: CASE EVENT DATE: 201905
